FAERS Safety Report 21280636 (Version 8)
Quarter: 2022Q4

REPORT INFORMATION
  Report Type: Report from Study
  Country: ES (occurrence: None)
  Receive Date: 20220901
  Receipt Date: 20221004
  Transmission Date: 20230112
  Serious: Yes (Death, Hospitalization)
  Sender: FDA-Public Use
  Company Number: ES-Eisai Medical Research-EC-2022-122468

PATIENT
  Age: 65 Year
  Sex: Male
  Weight: 77 kg

DRUGS (11)
  1. LENVATINIB [Suspect]
     Active Substance: LENVATINIB
     Indication: Non-small cell lung cancer metastatic
     Dosage: STARTING DOSE OF 20 MG (FLUCTUATED DOSAGE)
     Route: 048
     Dates: start: 20220204, end: 20220805
  2. PEMBROLIZUMAB [Suspect]
     Active Substance: PEMBROLIZUMAB
     Indication: Non-small cell lung cancer metastatic
     Route: 041
     Dates: start: 20220204, end: 20220802
  3. DEXTROMETHORPHAN [Concomitant]
     Active Substance: DEXTROMETHORPHAN
     Dates: start: 20220118
  4. ACETAMINOPHEN [Concomitant]
     Active Substance: ACETAMINOPHEN
     Dates: start: 20220111
  5. ESOMEPRAZOLE [Concomitant]
     Active Substance: ESOMEPRAZOLE
     Dates: start: 20190514
  6. CANDESARTAN [Concomitant]
     Active Substance: CANDESARTAN
     Dates: start: 20220408
  7. ASPIRIN [Concomitant]
     Active Substance: ASPIRIN
     Dates: start: 202009
  8. TRAMADOL HYDROCHLORIDE [Concomitant]
     Active Substance: TRAMADOL HYDROCHLORIDE
     Dates: start: 20220111
  9. HYDROCHLOROTHIAZIDE [Concomitant]
     Active Substance: HYDROCHLOROTHIAZIDE
     Dates: start: 20220408
  10. LEVOTHYROXINE SODIUM [Concomitant]
     Active Substance: LEVOTHYROXINE SODIUM
     Dates: start: 20220525
  11. PREDNISONE [Concomitant]
     Active Substance: PREDNISONE
     Dates: start: 20220526, end: 20220816

REACTIONS (1)
  - Cardio-respiratory arrest [Fatal]

NARRATIVE: CASE EVENT DATE: 20220828
